FAERS Safety Report 4366568-9 (Version None)
Quarter: 2004Q2

REPORT INFORMATION
  Report Type: 
  Country: None (occurrence: None)
  Receive Date: 20040524
  Receipt Date: 20040508
  Transmission Date: 20050107
  Serious: Yes (Hospitalization)
  Sender: FDA-Public Use
  Company Number: CIP04001071

PATIENT
  Age: 71 Year
  Sex: Male

DRUGS (3)
  1. DIDRONEL [Suspect]
     Indication: SPINAL LIGAMENT OSSIFICATION
     Dosage: 200 MG ONE DOSE ONLY, ORAL
     Route: 048
     Dates: start: 20000606, end: 20000606
  2. MAGNESIUM OXIDE [Concomitant]
  3. ULGUT (BENEXATE HYDROCHLORIDE) [Concomitant]

REACTIONS (3)
  - ANOREXIA [None]
  - NAUSEA [None]
  - VOMITING [None]
